FAERS Safety Report 18123675 (Version 1)
Quarter: 2020Q3

REPORT INFORMATION
  Report Type: Report from Study
  Country: None (occurrence: NZ)
  Receive Date: 20200807
  Receipt Date: 20200807
  Transmission Date: 20201103
  Serious: Yes (Other)
  Sender: FDA-Public Use
  Company Number: NZ-ABBVIE-19K-118-2836987-00

PATIENT
  Age: 39 Year
  Weight: 40 kg

DRUGS (3)
  1. MERCAPTOPURINE. [Suspect]
     Active Substance: MERCAPTOPURINE
     Indication: CROHN^S DISEASE
     Route: 048
  2. INFLIXIMAB [Suspect]
     Active Substance: INFLIXIMAB
     Indication: CROHN^S DISEASE
     Route: 065
  3. HUMIRA [Suspect]
     Active Substance: ADALIMUMAB
     Indication: CROHN^S DISEASE
     Route: 058

REACTIONS (13)
  - Faecal calprotectin abnormal [Unknown]
  - Crohn^s disease [Not Recovered/Not Resolved]
  - Fistula [Unknown]
  - Drug level abnormal [Unknown]
  - Adverse event [Not Recovered/Not Resolved]
  - Drug level abnormal [Unknown]
  - Surgery [Unknown]
  - Device intolerance [Unknown]
  - Drug level abnormal [Unknown]
  - Drug level abnormal [Unknown]
  - Drain placement [Unknown]
  - Adverse drug reaction [Unknown]
  - Drug level below therapeutic [Unknown]

NARRATIVE: CASE EVENT DATE: 201711
